FAERS Safety Report 10768603 (Version 1)
Quarter: 2015Q1

REPORT INFORMATION
  Report Type: Spontaneous
  Country: US (occurrence: None)
  Receive Date: 20150204
  Receipt Date: 20150204
  Transmission Date: 20150721
  Serious: Yes (Hospitalization, Other)
  Sender: FDA-Public Use
  Company Number: US-ZYDUS-006470

PATIENT
  Age: 33 Year
  Sex: Male

DRUGS (3)
  1. AMLODIPINE [Suspect]
     Active Substance: AMLODIPINE BESYLATE
     Indication: HYPERTENSION
  2. RIFAPENTINE [Suspect]
     Active Substance: RIFAPENTINE
     Indication: TUBERCULOSIS
  3. ISONIAZIDE [Suspect]
     Active Substance: ISONIAZID
     Indication: TUBERCULOSIS

REACTIONS (4)
  - Vomiting [None]
  - Hypertensive crisis [None]
  - Nausea [None]
  - Drug interaction [None]
